FAERS Safety Report 22022390 (Version 1)
Quarter: 2023Q1

REPORT INFORMATION
  Report Type: Spontaneous
  Country: CN (occurrence: CN)
  Receive Date: 20230222
  Receipt Date: 20230222
  Transmission Date: 20230417
  Serious: Yes (Other)
  Sender: FDA-Public Use
  Company Number: CN-PFIZER INC-PV202300032504

PATIENT
  Age: 44 Year
  Sex: Male
  Weight: 65 kg

DRUGS (6)
  1. LINEZOLID [Suspect]
     Active Substance: LINEZOLID
     Indication: Pulmonary tuberculosis
     Dosage: 0.6 G, 2X/DAY
     Route: 048
     Dates: start: 20221230, end: 20230120
  2. PYRAZINAMIDE [Suspect]
     Active Substance: PYRAZINAMIDE
     Indication: Pulmonary tuberculosis
     Dosage: 0.5 G, 1X/DAY
     Route: 048
     Dates: start: 20221230, end: 20230106
  3. PYRAZINAMIDE [Suspect]
     Active Substance: PYRAZINAMIDE
     Dosage: 0.5 G, 3X/DAY (AS REPORTED)
     Route: 048
     Dates: start: 20221230, end: 20230106
  4. BEDAQUILINE FUMARATE [Suspect]
     Active Substance: BEDAQUILINE FUMARATE
     Indication: Pulmonary tuberculosis
     Dosage: 400 MG, 1X/DAY
     Route: 048
     Dates: start: 20221230, end: 20230113
  5. CLOFAZIMINE [Suspect]
     Active Substance: CLOFAZIMINE
     Indication: Pulmonary tuberculosis
     Dosage: 200 MG, 1X/DAY
     Route: 048
     Dates: start: 20221230, end: 20230110
  6. CYCLOSERINE [Suspect]
     Active Substance: CYCLOSERINE
     Indication: Pulmonary tuberculosis
     Dosage: 0.75 G, 1X/DAY (0.5G IN THE MORNING AND 0.25G IN THE EVENING)
     Route: 048
     Dates: start: 20221230, end: 20230119

REACTIONS (2)
  - Drug-induced liver injury [Recovering/Resolving]
  - Off label use [Unknown]

NARRATIVE: CASE EVENT DATE: 20221230
